FAERS Safety Report 5569792-2 (Version None)
Quarter: 2007Q4

REPORT INFORMATION
  Report Type: 
  Country: None (occurrence: None)
  Receive Date: 20071218
  Receipt Date: 20071203
  Transmission Date: 20080405
  Serious: Yes (Disabling)
  Sender: FDA-Public Use
  Company Number: MK-6028022

PATIENT
  Age: 63 Year
  Sex: Male

DRUGS (10)
  1. RAMIPRIL [Suspect]
     Indication: DRUG USE FOR UNKNOWN INDICATION
     Dosage: 10 MG; DAILY;
     Dates: start: 20010510
  2. MYOCRISIN (SODIUM AUROTHIOMALATE) [Suspect]
     Indication: RHEUMATOID ARTHRITIS
     Dosage: 50 MG;/MONTH; INTRAMUSCULAR
     Route: 030
     Dates: start: 19840101
  3. ISOSORBIDE MONONTRATE [Concomitant]
  4. ASPIRIN [Concomitant]
  5. ATORVASTATIN [Concomitant]
  6. NICORANDIL [Concomitant]
  7. AMLODIPINE [Concomitant]
  8. CLOPIDOGREL [Concomitant]
  9. PREDNISOLONE [Concomitant]
  10. ATENOLOOL [Suspect]
     Indication: DRUG USE FOR UNKNOWN INDICATION
     Dosage: 50 MG

REACTIONS (6)
  - ANGINA PECTORIS [None]
  - HYPOTENSION [None]
  - MALAISE [None]
  - NAUSEA [None]
  - NITRITOID REACTION [None]
  - SYNCOPE VASOVAGAL [None]
